FAERS Safety Report 20577016 (Version 1)
Quarter: 2022Q1

REPORT INFORMATION
  Report Type: Spontaneous
  Country: US (occurrence: US)
  Receive Date: 20220310
  Receipt Date: 20220310
  Transmission Date: 20220424
  Serious: Yes (Other)
  Sender: FDA-Public Use
  Company Number: US-TORRENT-00011778

PATIENT
  Age: 81 Year
  Sex: Female

DRUGS (1)
  1. DULOXETINE HYDROCHLORIDE [Suspect]
     Active Substance: DULOXETINE HYDROCHLORIDE
     Indication: Product used for unknown indication
     Dosage: 30 MG
     Route: 065
     Dates: start: 20211015, end: 20211213

REACTIONS (9)
  - Urinary tract infection [Unknown]
  - Urine odour abnormal [Recovered/Resolved]
  - Fatigue [Recovered/Resolved]
  - Constipation [Not Recovered/Not Resolved]
  - Sluggishness [Recovered/Resolved]
  - Urinary retention [Unknown]
  - Stress [Unknown]
  - Anger [Unknown]
  - Depression [Unknown]
